FAERS Safety Report 12770380 (Version 1)
Quarter: 2016Q3

REPORT INFORMATION
  Report Type: Spontaneous
  Country: US (occurrence: US)
  Receive Date: 20160919
  Receipt Date: 20160919
  Transmission Date: 20161109
  Serious: Yes (Hospitalization)
  Sender: FDA-Public Use
  Company Number: None

PATIENT
  Age: 43 Year
  Sex: Male
  Weight: 114 kg

DRUGS (1)
  1. REMICADE [Suspect]
     Active Substance: INFLIXIMAB
     Indication: CROHN^S DISEASE
     Dosage: 600MG WEEKS 0,2 + 6 INTRAVENOUS
     Route: 042
     Dates: start: 20160912

REACTIONS (4)
  - Dyspnoea [None]
  - Pyrexia [None]
  - Joint swelling [None]
  - Rash [None]

NARRATIVE: CASE EVENT DATE: 20160917
